FAERS Safety Report 4360934-3 (Version None)
Quarter: 2004Q2

REPORT INFORMATION
  Report Type: 
  Country: None (occurrence: None)
  Receive Date: 20040520
  Receipt Date: 20040512
  Transmission Date: 20050107
  Serious: Yes (Other)
  Sender: FDA-Public Use
  Company Number: US-JNJFOC-20040500142

PATIENT
  Sex: Male
  Weight: 72.58 kg

DRUGS (10)
  1. REMICADE [Suspect]
     Indication: CROHN'S DISEASE
     Route: 042
  2. PERCOCET [Concomitant]
  3. PERCOCET [Concomitant]
  4. MS CONTIN [Concomitant]
  5. AMBIEN [Concomitant]
  6. XANAX [Concomitant]
  7. FLEXERIL [Concomitant]
  8. KLONIPIN [Concomitant]
  9. PENTASA [Concomitant]
  10. ASULFADINE [Concomitant]

REACTIONS (8)
  - AMNESIA [None]
  - BLOOD PRESSURE DECREASED [None]
  - BRADYPHRENIA [None]
  - LOSS OF CONSCIOUSNESS [None]
  - MULTIPLE SCLEROSIS [None]
  - NUCLEAR MAGNETIC RESONANCE IMAGING BRAIN ABNORMAL [None]
  - PAIN [None]
  - SYSTEMIC LUPUS ERYTHEMATOSUS [None]
